FAERS Safety Report 7121387-5 (Version None)
Quarter: 2010Q4

REPORT INFORMATION
  Report Type: 
  Country: None (occurrence: None)
  Receive Date: 20101119
  Receipt Date: 20101119
  Transmission Date: 20110411
  Serious: Yes (Hospitalization)
  Sender: FDA-Public Use
  Company Number: None

PATIENT
  Sex: Female

DRUGS (1)
  1. PEGASYS [Suspect]
     Dosage: 180 MCG WEEKLY SQ
     Route: 058
     Dates: start: 20100907, end: 20101109

REACTIONS (4)
  - CONVULSION [None]
  - DECREASED ACTIVITY [None]
  - LIQUID PRODUCT PHYSICAL ISSUE [None]
  - SOMNOLENCE [None]
